FAERS Safety Report 7766170-2 (Version None)
Quarter: 2011Q3

REPORT INFORMATION
  Report Type: 
  Country: None (occurrence: None)
  Receive Date: 20110921
  Receipt Date: 20110913
  Transmission Date: 20111222
  Serious: Yes (Other)
  Sender: FDA-Public Use
  Company Number: US-ASTRAZENECA-2011SE21710

PATIENT
  Age: 53 Year
  Sex: Female

DRUGS (3)
  1. NEXIUM [Suspect]
     Route: 048
  2. SEROQUEL [Suspect]
     Indication: SLEEP DISORDER
     Route: 048
  3. PREVACID [Concomitant]

REACTIONS (19)
  - ULCER [None]
  - ARTHRITIS [None]
  - CARPAL TUNNEL SYNDROME [None]
  - MUSCLE SWELLING [None]
  - HEADACHE [None]
  - SCIATICA [None]
  - INTERVERTEBRAL DISC PROTRUSION [None]
  - GASTRIC DISORDER [None]
  - PARAESTHESIA [None]
  - NERVE INJURY [None]
  - JOINT SWELLING [None]
  - BONE CALLUS EXCESSIVE [None]
  - OSTEOPOROSIS [None]
  - GASTROOESOPHAGEAL REFLUX DISEASE [None]
  - OEDEMA PERIPHERAL [None]
  - OFF LABEL USE [None]
  - MEDICAL DEVICE COMPLICATION [None]
  - EXOSTOSIS [None]
  - NECK PAIN [None]
